FAERS Safety Report 5083155-8 (Version None)
Quarter: 2006Q3

REPORT INFORMATION
  Report Type: 
  Country: None (occurrence: None)
  Receive Date: 20060724
  Receipt Date: 20031121
  Transmission Date: 20061208
  Serious: Yes (Hospitalization)
  Sender: FDA-Public Use
  Company Number: DRON00206001437

PATIENT
  Age: 50 Year
  Sex: Male
  Weight: 89 kg

DRUGS (11)
  1. MARINOL [Suspect]
     Indication: MULTIPLE SCLEROSIS
     Dosage: SEE IMAGE
     Route: 048
     Dates: start: 20021109, end: 20021115
  2. MARINOL [Suspect]
     Indication: MUSCLE SPASTICITY
     Dosage: SEE IMAGE
     Route: 048
     Dates: start: 20021109, end: 20021115
  3. MARINOL [Suspect]
     Indication: MULTIPLE SCLEROSIS
     Dosage: SEE IMAGE
     Route: 048
     Dates: start: 20021121, end: 20021208
  4. MARINOL [Suspect]
     Indication: MUSCLE SPASTICITY
     Dosage: SEE IMAGE
     Route: 048
     Dates: start: 20021121, end: 20021208
  5. MARINOL [Suspect]
     Indication: MULTIPLE SCLEROSIS
     Dosage: SEE IMAGE
     Route: 048
     Dates: start: 20020906, end: 20030606
  6. MARINOL [Suspect]
     Indication: MUSCLE SPASTICITY
     Dosage: SEE IMAGE
     Route: 048
     Dates: start: 20020906, end: 20030606
  7. BACLOFEN [Concomitant]
  8. EVENING PRIMROSE OIL (EVENING PRIMROSE OIL) [Concomitant]
  9. MOVICOL (MOVICOL) [Concomitant]
  10. PROZAC [Concomitant]
  11. ZOPICLONE (ZOPICLONE) [Concomitant]

REACTIONS (4)
  - DIARRHOEA [None]
  - HAEMATURIA [None]
  - URINARY TRACT INFECTION [None]
  - VOMITING [None]
